FAERS Safety Report 16429236 (Version 2)
Quarter: 2019Q2

REPORT INFORMATION
  Report Type: Report from Study
  Country: None (occurrence: BE)
  Receive Date: 20190614
  Receipt Date: 20190624
  Transmission Date: 20190711
  Serious: Yes (Other)
  Sender: FDA-Public Use
  Company Number: BE-ABBVIE-19S-013-2656899-00

PATIENT
  Sex: Female

DRUGS (13)
  1. PROLOPA 125 DISP [Concomitant]
     Dosage: FORM STRENGTH: 100MG/25MG; UNIT DOSE 0.5 TABLET
  2. PROLOPA 125 HBS [Concomitant]
     Indication: PARKINSON^S DISEASE
     Dosage: FORM STRENGTH: 100MG/25MG; UNIT DOSE: 1 CAPSULE
     Route: 048
  3. DUODOPA [Suspect]
     Active Substance: CARBIDOPA\LEVODOPA
     Dosage: DOSES CONTINUOUSLY MONITORED AND ADAPTED
     Route: 050
     Dates: start: 20170728, end: 20180626
  4. PROLOPA 250 [Concomitant]
     Dosage: 200MG/50MG; UNIT DOSE: 0.5 UNIT RESCUE MEDICATION, 6 TIMES A DAY
  5. DUODOPA [Suspect]
     Active Substance: CARBIDOPA\LEVODOPA
     Dosage: MD=9ML?CD=2.7ML/HR DURING 16HRS?ED=3ML
     Route: 050
     Dates: start: 20190607
  6. PROLOPA 125 HBS [Concomitant]
     Dosage: FORM STRENGTH: 100MG/25MG; UNIT DOSE: 1 CAPSULE
  7. DUODOPA [Suspect]
     Active Substance: CARBIDOPA\LEVODOPA
     Indication: PARKINSON^S DISEASE
     Dosage: MD=9ML CD=1.8ML/HR DURING 16HRS  ED=1.5ML
     Route: 050
     Dates: start: 20150928, end: 20170728
  8. DAFALGAN [Concomitant]
     Active Substance: ACETAMINOPHEN
     Indication: PRODUCT USED FOR UNKNOWN INDICATION
     Dosage: DURING THE DAY
  9. PROLOPA 125 DISP [Concomitant]
     Indication: PARKINSON^S DISEASE
     Dosage: FORM STRENGTH: 100MG/25MG; UNIT DOSE: 1 TABLET
     Route: 048
  10. DUODOPA [Suspect]
     Active Substance: CARBIDOPA\LEVODOPA
     Dosage: MD=9ML CD=2.4ML/HR DURING 16HRS  ED=3ML
     Route: 050
     Dates: start: 20180626, end: 20190607
  11. ASAFLOW [Concomitant]
     Active Substance: ASPIRIN
     Indication: PRODUCT USED FOR UNKNOWN INDICATION
  12. PROLOPA 250 [Concomitant]
     Indication: PARKINSON^S DISEASE
     Dosage: 200MG/50MG; UNIT DOSE: 0.25  TABLET, ONCE A DAY; 0.5 TABLET, 4 TIMES A DAY
     Route: 048
  13. KEPPRA [Concomitant]
     Active Substance: LEVETIRACETAM
     Indication: PRODUCT USED FOR UNKNOWN INDICATION

REACTIONS (10)
  - Shoulder operation [Unknown]
  - Osteoarthritis [Unknown]
  - Neuropathy peripheral [Unknown]
  - Stoma site erythema [Unknown]
  - Anaesthetic complication [Unknown]
  - Inappropriate schedule of product administration [Unknown]
  - Paraesthesia [Unknown]
  - On and off phenomenon [Recovering/Resolving]
  - Musculoskeletal discomfort [Unknown]
  - Dyskinesia [Unknown]
